FAERS Safety Report 7932478-0 (Version None)
Quarter: 2011Q4

REPORT INFORMATION
  Report Type: 
  Country: None (occurrence: None)
  Receive Date: 20111122
  Receipt Date: 20111115
  Transmission Date: 20120403
  Serious: No
  Sender: FDA-Public Use
  Company Number: US-BIOGENIDEC-2010BI009834

PATIENT
  Sex: Female

DRUGS (1)
  1. TYSABRI [Suspect]
     Indication: MULTIPLE SCLEROSIS
     Route: 042
     Dates: start: 20091110

REACTIONS (11)
  - DEPRESSED MOOD [None]
  - DECREASED APPETITE [None]
  - EYE DISORDER [None]
  - NASAL DRYNESS [None]
  - HEADACHE [None]
  - VAGINAL HAEMORRHAGE [None]
  - MEMORY IMPAIRMENT [None]
  - WEIGHT INCREASED [None]
  - CHILLS [None]
  - DRY THROAT [None]
  - FATIGUE [None]
